FAERS Safety Report 6118197-4 (Version None)
Quarter: 2009Q1

REPORT INFORMATION
  Report Type: 
  Country: None (occurrence: None)
  Receive Date: 20090314
  Receipt Date: 20090209
  Transmission Date: 20090719
  Serious: No
  Sender: FDA-Public Use
  Company Number: US-ABBOTT-09P-163-0502948-00

PATIENT
  Sex: Male
  Weight: 72.64 kg

DRUGS (6)
  1. HUMIRA [Suspect]
     Indication: CROHN'S DISEASE
     Dosage: INITIAL LOADING DOSE WAS 4 PENS, THEN 2 PENS
     Route: 058
     Dates: start: 20090106, end: 20090106
  2. HUMIRA [Suspect]
  3. HUMIRA [Suspect]
  4. IMURAN [Concomitant]
     Indication: CROHN'S DISEASE
  5. NEXIUM [Concomitant]
     Indication: DRUG USE FOR UNKNOWN INDICATION
     Route: 048
  6. FOLIC ACID [Concomitant]
     Indication: CROHN'S DISEASE
     Route: 048

REACTIONS (2)
  - CROHN'S DISEASE [None]
  - PAIN [None]
